FAERS Safety Report 7081376-6 (Version None)
Quarter: 2010Q4

REPORT INFORMATION
  Report Type: 
  Country: None (occurrence: None)
  Receive Date: 20101025
  Receipt Date: 20101019
  Transmission Date: 20110411
  Serious: Yes (Life-Threatening, Hospitalization)
  Sender: FDA-Public Use
  Company Number: 2010-3386

PATIENT
  Sex: Female

DRUGS (1)
  1. APO-GO AMPOULES (APO-GO) (APOMORPHINE HYDROCHLORIDE) (APOMORPHINE  HYD [Suspect]
     Indication: PARKINSON'S DISEASE
     Dosage: CONTINOUS INFUSION, SUBCUTANEOUS
     Route: 058

REACTIONS (1)
  - ANAEMIA HAEMOLYTIC AUTOIMMUNE [None]
